FAERS Safety Report 7114340-9 (Version None)
Quarter: 2010Q4

REPORT INFORMATION
  Report Type: 
  Country: None (occurrence: None)
  Receive Date: 20101119
  Receipt Date: 20101112
  Transmission Date: 20110411
  Serious: Yes (Other)
  Sender: FDA-Public Use
  Company Number: US-PFIZER INC-2010147431

PATIENT
  Sex: Female
  Weight: 83.9 kg

DRUGS (2)
  1. GEODON [Suspect]
     Indication: MENTAL DISORDER
     Dosage: 100 MG, 1X/DAY
     Route: 048
     Dates: start: 20070101
  2. AMANTADINE [Suspect]
     Dosage: UNK

REACTIONS (4)
  - DRY MOUTH [None]
  - HALLUCINATION [None]
  - INSOMNIA [None]
  - MALAISE [None]
